FAERS Safety Report 6418683-3 (Version None)
Quarter: 2009Q4

REPORT INFORMATION
  Report Type: 
  Country: None (occurrence: None)
  Receive Date: 20091028
  Receipt Date: 20091014
  Transmission Date: 20100525
  Serious: Yes (Hospitalization)
  Sender: FDA-Public Use
  Company Number: FR-GENENTECH-292650

PATIENT
  Sex: Male

DRUGS (6)
  1. RITUXIMAB [Suspect]
     Indication: MANTLE CELL LYMPHOMA
     Dosage: 700 MG, QD
     Route: 041
     Dates: start: 20090624, end: 20090715
  2. CISPLATIN [Suspect]
     Indication: MANTLE CELL LYMPHOMA
     Dosage: UNK
     Route: 042
     Dates: start: 20090624, end: 20090624
  3. CYTARABINE [Suspect]
     Indication: MANTLE CELL LYMPHOMA
     Dosage: 8 MG, QD
     Route: 041
     Dates: start: 20090625, end: 20090716
  4. DEXAMETHASONE [Suspect]
     Indication: MANTLE CELL LYMPHOMA
     Dosage: 40 MG, QD
     Route: 041
     Dates: start: 20090624, end: 20090716
  5. BACTRIM [Concomitant]
     Indication: DRUG USE FOR UNKNOWN INDICATION
     Dosage: UNK
     Dates: start: 20090513
  6. ZELITREX [Concomitant]
     Indication: DRUG USE FOR UNKNOWN INDICATION
     Dosage: UNK
     Dates: start: 20090513

REACTIONS (3)
  - ACUTE PRERENAL FAILURE [None]
  - ANAEMIA [None]
  - VOMITING [None]
